FAERS Safety Report 10257171 (Version 1)
Quarter: 2014Q2

REPORT INFORMATION
  Report Type: Spontaneous
  Country: US (occurrence: None)
  Receive Date: 20140623
  Receipt Date: 20140623
  Transmission Date: 20141212
  Serious: Yes (Other)
  Sender: FDA-Public Use
  Company Number: None

PATIENT
  Age: 22 Year
  Sex: Female
  Weight: 60.33 kg

DRUGS (1)
  1. DEXTROAMP-AMPHET ER [Suspect]
     Indication: ATTENTION DEFICIT/HYPERACTIVITY DISORDER
     Route: 048
     Dates: start: 20140401, end: 20140416

REACTIONS (7)
  - Irritability [None]
  - Diarrhoea [None]
  - Constipation [None]
  - Dizziness [None]
  - Nausea [None]
  - Product substitution issue [None]
  - Feeling abnormal [None]
